FAERS Safety Report 12766584 (Version 1)
Quarter: 2016Q3

REPORT INFORMATION
  Report Type: Spontaneous
  Country: US (occurrence: US)
  Receive Date: 20160921
  Receipt Date: 20160921
  Transmission Date: 20161109
  Serious: Yes (Disabling)
  Sender: FDA-Public Use
  Company Number: None

PATIENT
  Age: 63 Year
  Sex: Female
  Weight: 66.68 kg

DRUGS (10)
  1. SPIRONOLACTONE. [Concomitant]
     Active Substance: SPIRONOLACTONE
  2. CALCIUM [Concomitant]
     Active Substance: CALCIUM
  3. VITAMIN D3 [Concomitant]
     Active Substance: CHOLECALCIFEROL
  4. ESTRADIOL. [Concomitant]
     Active Substance: ESTRADIOL
  5. ASPIRIN. [Concomitant]
     Active Substance: ASPIRIN
  6. MAGNESIUM [Concomitant]
     Active Substance: MAGNESIUM
  7. POTASSIUM [Concomitant]
     Active Substance: POTASSIUM
  8. TRINTELLIX [Suspect]
     Active Substance: VORTIOXETINE HYDROBROMIDE
     Indication: DRUG WITHDRAWAL MAINTENANCE THERAPY
     Route: 048
     Dates: start: 20160801, end: 20160803
  9. XANAX [Concomitant]
     Active Substance: ALPRAZOLAM
  10. MULTI VIT [Concomitant]

REACTIONS (9)
  - Nervous system disorder [None]
  - Panic attack [None]
  - Dizziness [None]
  - Vision blurred [None]
  - Balance disorder [None]
  - Impaired driving ability [None]
  - Sleep disorder [None]
  - Dysarthria [None]
  - Dysgraphia [None]

NARRATIVE: CASE EVENT DATE: 20160801
